FAERS Safety Report 19303964 (Version 1)
Quarter: 2021Q2

REPORT INFORMATION
  Report Type: Spontaneous
  Country: FR (occurrence: FR)
  Receive Date: 20210525
  Receipt Date: 20210525
  Transmission Date: 20210717
  Serious: Yes (Other)
  Sender: FDA-Public Use
  Company Number: NVSC2021FR114997

PATIENT
  Age: 81 Year
  Sex: Female
  Weight: 55 kg

DRUGS (2)
  1. MEKINIST [Suspect]
     Active Substance: TRAMETINIB DIMETHYL SULFOXIDE
     Indication: MALIGNANT MELANOMA
     Dosage: 0.5 MG, QD
     Route: 048
     Dates: start: 20170512, end: 20210319
  2. TAFINLAR [Suspect]
     Active Substance: DABRAFENIB MESYLATE
     Indication: MALIGNANT MELANOMA
     Dosage: UNK (75MGX2/JOUR)
     Route: 048
     Dates: start: 20170512, end: 20210319

REACTIONS (1)
  - Cholangitis acute [Not Recovered/Not Resolved]

NARRATIVE: CASE EVENT DATE: 20190109
